FAERS Safety Report 17314597 (Version 1)
Quarter: 2020Q1

REPORT INFORMATION
  Report Type: Spontaneous
  Country: US (occurrence: US)
  Receive Date: 20200124
  Receipt Date: 20200124
  Transmission Date: 20200409
  Serious: No
  Sender: FDA-Public Use
  Company Number: US-ASTRAZENECA-2019SF91897

PATIENT
  Sex: Female

DRUGS (1)
  1. BYDUREON [Suspect]
     Active Substance: EXENATIDE
     Route: 065

REACTIONS (6)
  - Salivary hypersecretion [Unknown]
  - Malaise [Unknown]
  - Dyspepsia [Unknown]
  - Hunger [Unknown]
  - Nausea [Unknown]
  - Abdominal pain upper [Unknown]
